FAERS Safety Report 14506252 (Version 2)
Quarter: 2018Q1

REPORT INFORMATION
  Report Type: Spontaneous
  Country: CN (occurrence: CN)
  Receive Date: 20180208
  Receipt Date: 20180209
  Transmission Date: 20180509
  Serious: Yes (Other)
  Sender: FDA-Public Use
  Company Number: CN-LUPIN PHARMACEUTICALS INC.-2017-00837

PATIENT
  Age: 37 Year
  Sex: Male

DRUGS (9)
  1. ESCITALOPRAM OXALATE. [Suspect]
     Active Substance: ESCITALOPRAM OXALATE
     Indication: IRRITABILITY
     Dosage: UNK UNK,UNK,UNKNOWN
     Route: 065
  2. RISPERIDONE. [Suspect]
     Active Substance: RISPERIDONE
     Indication: IRRITABILITY
     Dosage: UNK UNK,UNK,UNKNOWN
     Route: 065
  3. ESCITALOPRAM OXALATE. [Suspect]
     Active Substance: ESCITALOPRAM OXALATE
     Indication: APNOEA
  4. RISPERIDONE. [Suspect]
     Active Substance: RISPERIDONE
     Indication: APNOEA
  5. ESCITALOPRAM OXALATE. [Suspect]
     Active Substance: ESCITALOPRAM OXALATE
     Indication: COMMUNICATION DISORDER
  6. SERTRALINE [Suspect]
     Active Substance: SERTRALINE HYDROCHLORIDE
     Indication: COMMUNICATION DISORDER
  7. SERTRALINE [Suspect]
     Active Substance: SERTRALINE HYDROCHLORIDE
     Indication: IRRITABILITY
     Dosage: UNK UNK,UNK,UNKNOWN
     Route: 065
  8. SERTRALINE [Suspect]
     Active Substance: SERTRALINE HYDROCHLORIDE
     Indication: APNOEA
  9. RISPERIDONE. [Suspect]
     Active Substance: RISPERIDONE
     Indication: COMMUNICATION DISORDER

REACTIONS (1)
  - Mania [Unknown]
